FAERS Safety Report 13818365 (Version 1)
Quarter: 2017Q3

REPORT INFORMATION
  Report Type: Spontaneous
  Country: US (occurrence: US)
  Receive Date: 20170731
  Receipt Date: 20170731
  Transmission Date: 20171127
  Serious: No
  Sender: FDA-Public Use
  Company Number: US-ROCHE-608385

PATIENT
  Age: 65 Year
  Sex: Female
  Weight: 65.8 kg

DRUGS (2)
  1. BONIVA [Suspect]
     Active Substance: IBANDRONATE SODIUM
     Indication: OSTEOPOROSIS
     Dosage: STRENGTH: 3 MG/ 3 ML;LOT NO. H0106H01
     Route: 042
  2. BONIVA [Suspect]
     Active Substance: IBANDRONATE SODIUM
     Dosage: LOT NO. H0324401
     Route: 042

REACTIONS (3)
  - Burning sensation [Unknown]
  - Arthralgia [Unknown]
  - Muscular weakness [Unknown]
